FAERS Safety Report 7634570-7 (Version None)
Quarter: 2011Q3

REPORT INFORMATION
  Report Type: 
  Country: None (occurrence: None)
  Receive Date: 20110725
  Receipt Date: 20110720
  Transmission Date: 20111222
  Serious: Yes (Other)
  Sender: FDA-Public Use
  Company Number: US-PFIZER INC-2011047020

PATIENT
  Sex: Female

DRUGS (1)
  1. LIPITOR [Suspect]
     Dosage: UNK

REACTIONS (8)
  - HYPERTENSION [None]
  - FATIGUE [None]
  - HYPERHIDROSIS [None]
  - DYSPHONIA [None]
  - VASCULAR GRAFT [None]
  - HEADACHE [None]
  - MALAISE [None]
  - MYOCARDIAL INFARCTION [None]
